FAERS Safety Report 7530590-1 (Version None)
Quarter: 2011Q2

REPORT INFORMATION
  Report Type: 
  Country: None (occurrence: None)
  Receive Date: 20110607
  Receipt Date: 20110525
  Transmission Date: 20111010
  Serious: Yes (Hospitalization)
  Sender: FDA-Public Use
  Company Number: DE-UCBSA-021445

PATIENT
  Sex: Female
  Weight: 92 kg

DRUGS (5)
  1. ALLOPURINOL [Concomitant]
     Indication: HYPERURICAEMIA
     Route: 048
     Dates: start: 20090526
  2. CIMZIA [Suspect]
     Indication: RHEUMATOID ARTHRITIS
     Route: 058
     Dates: start: 20100921, end: 20101019
  3. OMEPRAZOLE [Concomitant]
     Indication: PROPHYLAXIS
     Route: 048
     Dates: start: 20080226
  4. IBUPROFEN [Concomitant]
     Indication: PAIN
     Route: 048
     Dates: start: 20100526
  5. CIMZIA [Suspect]
     Route: 058
     Dates: start: 20101102

REACTIONS (3)
  - LUMBAR RADICULOPATHY [None]
  - BURSITIS [None]
  - LUMBAR SPINAL STENOSIS [None]
